FAERS Safety Report 9684874 (Version 2)
Quarter: 2013Q4

REPORT INFORMATION
  Report Type: Report from Study
  Country: CN (occurrence: CN)
  Receive Date: 20131112
  Receipt Date: 20131227
  Transmission Date: 20140711
  Serious: Yes (Hospitalization)
  Sender: FDA-Public Use
  Company Number: CN-AMGEN-CHNCT2013079382

PATIENT
  Age: 70 Year
  Sex: Male

DRUGS (6)
  1. DARBEPOETIN ALFA [Suspect]
     Indication: NEPHROGENIC ANAEMIA
     Dosage: 30 MUG, UNK
     Route: 042
     Dates: start: 20131021, end: 20131103
  2. EPOETIN ALFA [Suspect]
     Indication: NEPHROGENIC ANAEMIA
     Dosage: 7500 IU/WEEK
     Route: 042
     Dates: start: 20130826, end: 20131020
  3. FELODIPINE [Concomitant]
     Dosage: 10 MG/DAY
     Route: 048
     Dates: start: 20130228
  4. PROTAMINE ZINC ISZILIN [Concomitant]
     Dosage: 20 IU, BID
     Dates: start: 20130305
  5. CALCITRIOL [Concomitant]
     Dosage: 0.25 MUG, QD
     Route: 048
     Dates: start: 20130228
  6. IRON SUCROSE [Concomitant]
     Dosage: 100 MG, QW
     Route: 042
     Dates: start: 20130826

REACTIONS (1)
  - Asthenia [Unknown]
